FAERS Safety Report 10233509 (Version 1)
Quarter: 2014Q2

REPORT INFORMATION
  Report Type: Spontaneous
  Country: US (occurrence: None)
  Receive Date: 20140611
  Receipt Date: 20140611
  Transmission Date: 20141212
  Serious: No
  Sender: FDA-Public Use
  Company Number: None

PATIENT
  Age: 40 Year
  Sex: Male
  Weight: 141.8 kg

DRUGS (1)
  1. CEPHALEXIN [Suspect]
     Indication: CELLULITIS
     Route: 048
     Dates: start: 20140501, end: 20140513

REACTIONS (5)
  - Diarrhoea [None]
  - Abdominal distension [None]
  - Nausea [None]
  - Blood potassium [None]
  - Clostridium test positive [None]
